FAERS Safety Report 25196044 (Version 1)
Quarter: 2025Q2

REPORT INFORMATION
  Report Type: Spontaneous
  Country: NL (occurrence: NL)
  Receive Date: 20250415
  Receipt Date: 20250415
  Transmission Date: 20250717
  Serious: Yes (Hospitalization, Other)
  Sender: BAXTER
  Company Number: None

PATIENT
  Age: 74 Year
  Sex: Female
  Weight: 45.5 kg

DRUGS (12)
  1. MANNITOL [Suspect]
     Active Substance: MANNITOL
     Indication: Glaucoma
     Route: 065
     Dates: start: 20250329, end: 20250331
  2. CALCIUM CARBONATE\CHOLECALCIFEROL [Concomitant]
     Active Substance: CALCIUM CARBONATE\CHOLECALCIFEROL
     Route: 048
  3. ASCORBIC ACID [Concomitant]
     Active Substance: ASCORBIC ACID
     Route: 048
  4. AMITRIPTYLINE HYDROCHLORIDE [Concomitant]
     Active Substance: AMITRIPTYLINE HYDROCHLORIDE
     Route: 048
  5. ACETAMINOPHEN [Concomitant]
     Active Substance: ACETAMINOPHEN
     Route: 048
  6. APRACLONIDINE [Concomitant]
     Active Substance: APRACLONIDINE HYDROCHLORIDE
  7. KLEAN-PREP [Concomitant]
     Active Substance: ELECTROLYTES NOS\POLYETHYLENE GLYCOL 3350
     Route: 048
  8. OMEPRAZOLE [Concomitant]
     Active Substance: OMEPRAZOLE
     Route: 048
  9. OXYBUTYNIN CHLORIDE [Concomitant]
     Active Substance: OXYBUTYNIN CHLORIDE
     Route: 048
  10. ATROPINE [Concomitant]
     Active Substance: ATROPINE
  11. PRED FORTE [Concomitant]
     Active Substance: PREDNISOLONE ACETATE
  12. DORZOLAMIDE\TIMOLOL [Concomitant]
     Active Substance: DORZOLAMIDE\TIMOLOL

REACTIONS (2)
  - Syncope [Recovered/Resolved]
  - Hypokalaemia [Recovered/Resolved]
